FAERS Safety Report 4292554-3 (Version None)
Quarter: 2004Q1

REPORT INFORMATION
  Report Type: 
  Country: None (occurrence: None)
  Receive Date: 20040210
  Receipt Date: 20040130
  Transmission Date: 20041129
  Serious: Yes (Hospitalization)
  Sender: FDA-Public Use
  Company Number: HQWYE789302FEB04

PATIENT
  Age: 36 Year
  Sex: Male

DRUGS (9)
  1. RAPAMUNE (SIROLIMUS, TABLET) LOT NO.: 2003P0227 [Suspect]
     Indication: PROPHYLAXIS AGAINST TRANSPLANT REJECTION
     Dosage: 6 MG 1X PER 1 DAY, ORAL
     Route: 048
     Dates: start: 20030805
  2. MYCOPHENOLATE MOFETIL (MYCOPHENOLAET MOFETIL, ) [Suspect]
     Indication: IMMUNOSUPPRESSION
     Dosage: 1 G 1X PER 1 DAY, ORAL
     Route: 048
     Dates: start: 20031011
  3. PREDNISOLONE [Suspect]
     Indication: IMMUNOSUPPRESSION
     Dosage: 10 MG 1X PER 1 DAY, ORAL
     Route: 048
     Dates: start: 20030825
  4. SULFAMETHOXAZOLE + TRIMETHOPRIM [Concomitant]
  5. PERINDOPRIL (PERINDOPRIL) [Concomitant]
  6. HYDROCHLOROTHIAZIDE [Concomitant]
  7. ATENOLOL [Concomitant]
  8. AMLODIPINE [Concomitant]
  9. SIMVASTATIN [Concomitant]

REACTIONS (1)
  - CONDYLOMA ACUMINATUM [None]
